FAERS Safety Report 13390286 (Version 1)
Quarter: 2017Q1

REPORT INFORMATION
  Report Type: Spontaneous
  Country: US (occurrence: US)
  Receive Date: 20170330
  Receipt Date: 20170330
  Transmission Date: 20170429
  Serious: Yes (Hospitalization)
  Sender: FDA-Public Use
  Company Number: None

PATIENT
  Age: 66 Year
  Sex: Male
  Weight: 115.1 kg

DRUGS (2)
  1. TESTOSTERONE. [Suspect]
     Active Substance: TESTOSTERONE
     Indication: DEEP VEIN THROMBOSIS
     Dosage: OTHER
     Route: 030
     Dates: start: 20141124, end: 20160120
  2. TESTOSTERONE. [Suspect]
     Active Substance: TESTOSTERONE
     Indication: PULMONARY EMBOLISM
     Dosage: OTHER
     Route: 030
     Dates: start: 20141124, end: 20160120

REACTIONS (3)
  - Pulmonary embolism [None]
  - Thrombosis [None]
  - Deep vein thrombosis [None]

NARRATIVE: CASE EVENT DATE: 20160120
